FAERS Safety Report 14506075 (Version 1)
Quarter: 2018Q1

REPORT INFORMATION
  Report Type: Spontaneous
  Country: US (occurrence: US)
  Receive Date: 20180207
  Receipt Date: 20180207
  Transmission Date: 20180509
  Serious: No
  Sender: FDA-Public Use
  Company Number: None

PATIENT
  Age: 36 Year
  Sex: Female
  Weight: 58.5 kg

DRUGS (1)
  1. TAMIFLU [Suspect]
     Active Substance: OSELTAMIVIR PHOSPHATE
     Indication: INFLUENZA
     Route: 048
     Dates: start: 20140207, end: 20140208

REACTIONS (6)
  - Pyrexia [None]
  - Fear [None]
  - Anxiety [None]
  - Panic reaction [None]
  - Hallucination, visual [None]
  - Agitation [None]

NARRATIVE: CASE EVENT DATE: 20140207
